FAERS Safety Report 8772136 (Version 2)
Quarter: 2012Q4

REPORT INFORMATION
  Report Type: 
  Country: US (occurrence: US)
  Receive Date: 20120906
  Receipt Date: 20120923
  Transmission Date: 20130627
  Serious: No
  Sender: FDA-Public Use
  Company Number: US-009507513-1209USA001402

PATIENT
  Sex: Female
  Weight: 107.94 kg

DRUGS (1)
  1. DULERA [Suspect]
     Indication: ASTHMA
     Dosage: 2 puffs, bid
     Route: 055
     Dates: start: 20100921, end: 20100930

REACTIONS (1)
  - Alopecia [Recovering/Resolving]
